FAERS Safety Report 7354014-2 (Version None)
Quarter: 2011Q1

REPORT INFORMATION
  Report Type: 
  Country: None (occurrence: None)
  Receive Date: 20110315
  Receipt Date: 20110307
  Transmission Date: 20110831
  Serious: Yes (Death, Other)
  Sender: FDA-Public Use
  Company Number: PHHO2011FR04268

PATIENT
  Sex: Male

DRUGS (2)
  1. CORTICOSTEROID NOS [Suspect]
  2. STI571/CGP57148B [Suspect]
     Indication: ACUTE LYMPHOCYTIC LEUKAEMIA
     Dosage: UNK
     Route: 048

REACTIONS (11)
  - DIABETES MELLITUS [None]
  - GRAFT VERSUS HOST DISEASE [None]
  - CHOLESTASIS [None]
  - CREPITATIONS [None]
  - COUGH [None]
  - RECTAL HAEMORRHAGE [None]
  - CHEST PAIN [None]
  - DYSPNOEA [None]
  - HAEMOPTYSIS [None]
  - GENERAL PHYSICAL HEALTH DETERIORATION [None]
  - BRONCHOPULMONARY ASPERGILLOSIS [None]
